FAERS Safety Report 11650199 (Version 1)
Quarter: 2015Q4

REPORT INFORMATION
  Report Type: Spontaneous
  Country: US (occurrence: US)
  Receive Date: 20151021
  Receipt Date: 20151021
  Transmission Date: 20160304
  Serious: No
  Sender: FDA-Public Use
  Company Number: US-PFIZER INC-2015343907

PATIENT
  Age: 37 Year
  Sex: Female

DRUGS (1)
  1. LYRICA [Suspect]
     Active Substance: PREGABALIN
     Indication: DEPRESSION
     Dosage: 50 MG, 3X/DAY
     Route: 048

REACTIONS (5)
  - Impaired work ability [Unknown]
  - Product use issue [Unknown]
  - Apathy [Unknown]
  - Insomnia [Unknown]
  - Anxiety [Unknown]
